FAERS Safety Report 7173663-8 (Version None)
Quarter: 2010Q4

REPORT INFORMATION
  Report Type: 
  Country: None (occurrence: None)
  Receive Date: 20101219
  Receipt Date: 20100306
  Transmission Date: 20110411
  Serious: No
  Sender: FDA-Public Use
  Company Number: US-AMGEN-KDL398053

PATIENT

DRUGS (2)
  1. ENBREL [Suspect]
     Indication: RHEUMATOID ARTHRITIS
     Dosage: 50 MG, QWK
     Route: 058
     Dates: start: 20090202
  2. LEFLUNOMIDE [Concomitant]
     Dosage: 20 MG, QD
     Route: 048

REACTIONS (10)
  - ALOPECIA [None]
  - ARTHRALGIA [None]
  - BLOOD CALCIUM INCREASED [None]
  - CARPAL TUNNEL SYNDROME [None]
  - COLD SWEAT [None]
  - DENTAL CARIES [None]
  - HOT FLUSH [None]
  - HYPERHIDROSIS [None]
  - LOOSE TOOTH [None]
  - RENAL DISORDER [None]
